FAERS Safety Report 8059223-5 (Version None)
Quarter: 2012Q1

REPORT INFORMATION
  Report Type: 
  Country: None (occurrence: None)
  Receive Date: 20120120
  Receipt Date: 20120112
  Transmission Date: 20120608
  Serious: Yes (Hospitalization)
  Sender: FDA-Public Use
  Company Number: GB-GILEAD-2012-0049307

PATIENT
  Age: 78 Year
  Sex: Male

DRUGS (4)
  1. WARFARIN SODIUM [Concomitant]
     Route: 048
  2. AMBRISENTAN [Suspect]
     Dosage: 2.5MG PER DAY
     Route: 048
     Dates: start: 20120102
  3. WARFARIN SODIUM [Concomitant]
     Route: 048
     Dates: start: 20111230
  4. AMBRISENTAN [Suspect]
     Indication: PULMONARY HYPERTENSION
     Dosage: 2.5MG PER DAY
     Route: 048
     Dates: start: 20110101

REACTIONS (4)
  - ASTHENIA [None]
  - CHRONIC OBSTRUCTIVE PULMONARY DISEASE [None]
  - EPISTAXIS [None]
  - PYREXIA [None]
